FAERS Safety Report 12802461 (Version 1)
Quarter: 2016Q4

REPORT INFORMATION
  Report Type: Report from Study
  Country: CH (occurrence: CH)
  Receive Date: 20161003
  Receipt Date: 20161003
  Transmission Date: 20170207
  Serious: Yes (Other)
  Sender: FDA-Public Use
  Company Number: CH-MYLANLABS-2016M1042053

PATIENT

DRUGS (2)
  1. CCNU [Suspect]
     Active Substance: LOMUSTINE
     Indication: EWING^S SARCOMA
     Dosage: TWO CYCLES
     Route: 065
     Dates: end: 200702
  2. CISPLATIN. [Suspect]
     Active Substance: CISPLATIN
     Indication: EWING^S SARCOMA
     Dosage: TWO CYCLES
     Route: 065
     Dates: end: 200702

REACTIONS (1)
  - Bone marrow toxicity [Unknown]

NARRATIVE: CASE EVENT DATE: 200702
